FAERS Safety Report 21974482 (Version 1)
Quarter: 2023Q1

REPORT INFORMATION
  Report Type: Other
  Country: RU (occurrence: RU)
  Receive Date: 20230209
  Receipt Date: 20230209
  Transmission Date: 20230418
  Serious: Yes (Life-Threatening)
  Sender: FDA-Public Use
  Company Number: RU-PIERREL PHARMA S.R.L-2023PIR00002

PATIENT
  Age: 31 Year
  Sex: Male
  Weight: 85 kg

DRUGS (1)
  1. ORABLOC [Suspect]
     Active Substance: ARTICAINE HYDROCHLORIDE\EPINEPHRINE BITARTRATE
     Indication: Dental local anaesthesia
     Dosage: 1.7 ML
     Route: 058
     Dates: start: 20230118, end: 20230118

REACTIONS (3)
  - Blood pressure ambulatory decreased [Recovering/Resolving]
  - Loss of consciousness [Recovering/Resolving]
  - Syncope [Recovering/Resolving]

NARRATIVE: CASE EVENT DATE: 20230118
